FAERS Safety Report 22390585 (Version 1)
Quarter: 2023Q2

REPORT INFORMATION
  Report Type: Spontaneous
  Country: US (occurrence: US)
  Receive Date: 20230531
  Receipt Date: 20230531
  Transmission Date: 20230721
  Serious: Yes (Other)
  Sender: FDA-Public Use
  Company Number: US-HORIZON THERAPEUTICS-HZN-2023-003963

PATIENT

DRUGS (1)
  1. TEPEZZA [Suspect]
     Active Substance: TEPROTUMUMAB-TRBW
     Indication: Endocrine ophthalmopathy
     Dosage: UNKNOWN DOSE
     Route: 065

REACTIONS (5)
  - Renal failure [Unknown]
  - Skin exfoliation [Unknown]
  - Dry skin [Unknown]
  - Alopecia [Unknown]
  - Drug ineffective [Unknown]
